FAERS Safety Report 10407565 (Version 2)
Quarter: 2014Q3

REPORT INFORMATION
  Report Type: Spontaneous
  Country: US (occurrence: US)
  Receive Date: 20140825
  Receipt Date: 20140825
  Transmission Date: 20150326
  Serious: No
  Sender: FDA-Public Use
  Company Number: US-BRACCO-010083

PATIENT

DRUGS (2)
  1. KINEVAC [Suspect]
     Active Substance: SINCALIDE
     Indication: HEPATOBILIARY SCAN
     Dosage: 0.02 MCG/KG PER PATIENT^S WEIGHT
     Route: 042
     Dates: start: 20130912
  2. MEBROFENIN. [Concomitant]
     Active Substance: MEBROFENIN
     Indication: HEPATOBILIARY SCAN
     Dosage: ADMINISTED AS PART OF THE HIDA SCAN PRIOR TO THE KINEVAC
     Dates: start: 20130912

REACTIONS (1)
  - Drug effect decreased [Unknown]

NARRATIVE: CASE EVENT DATE: 20130912
